FAERS Safety Report 9122635 (Version 1)
Quarter: 2013Q1

REPORT INFORMATION
  Report Type: Spontaneous
  Country: US (occurrence: US)
  Receive Date: 20130115
  Receipt Date: 20130115
  Transmission Date: 20140127
  Serious: Yes (Other)
  Sender: FDA-Public Use
  Company Number: US-009507513-1301USA003368

PATIENT
  Age: 19 Year
  Sex: Male

DRUGS (7)
  1. SINGULAIR [Suspect]
  2. FLONASE [Suspect]
  3. DIGOXIN [Suspect]
  4. CISAPRIDE [Suspect]
     Indication: GASTROINTESTINAL HYPOMOTILITY
     Dosage: 7 MG, QID
     Route: 048
  5. CISAPRIDE [Suspect]
     Indication: GASTROOESOPHAGEAL REFLUX DISEASE
  6. VITAMINS (UNSPECIFIED) [Concomitant]
  7. ATIVAN [Concomitant]

REACTIONS (1)
  - Electrocardiogram QT prolonged [Unknown]
